FAERS Safety Report 5359769-4 (Version None)
Quarter: 2007Q2

REPORT INFORMATION
  Report Type: 
  Country: None (occurrence: None)
  Receive Date: 20070616
  Receipt Date: 20070606
  Transmission Date: 20071010
  Serious: Yes (Other)
  Sender: FDA-Public Use
  Company Number: JP-PFIZER INC-2007047873

PATIENT
  Age: 64 Year
  Sex: Female

DRUGS (2)
  1. LIPITOR [Suspect]
     Indication: HYPERCHOLESTEROLAEMIA
     Route: 048
     Dates: start: 20070521, end: 20070604
  2. INSULIN [Concomitant]

REACTIONS (2)
  - DRUG ERUPTION [None]
  - HENOCH-SCHONLEIN PURPURA [None]
